FAERS Safety Report 8701518 (Version 2)
Quarter: 2013Q2

REPORT INFORMATION
  Report Type: Spontaneous
  Country: FR (occurrence: FR)
  Receive Date: 20120802
  Receipt Date: 20130410
  Transmission Date: 20140414
  Serious: Yes (Other)
  Sender: FDA-Public Use
  Company Number: FR-AMGEN-FRASP2012047910

PATIENT
  Age: 39 Year
  Sex: Female

DRUGS (8)
  1. NEUPOGEN [Suspect]
     Indication: PROPHYLAXIS
     Dosage: UNK
     Route: 042
     Dates: start: 20111215, end: 20111219
  2. DOCETAXEL [Suspect]
     Indication: BREAST CANCER
     Dosage: 171 MG, 1 IN 1 DEPENDS OF CYCLE
     Route: 042
     Dates: start: 20111212, end: 20111212
  3. CYCLOPHOSPHAMIDE [Concomitant]
     Dosage: 600 MG/M2, UNK
  4. EPIRUBICINE [Concomitant]
     Dosage: 100 MG/M2, UNK
  5. ONDANSETRON [Concomitant]
  6. METHYLPREDNISOLONE [Concomitant]
  7. METOCLOPRAMIDE [Concomitant]
  8. INIPOMP [Concomitant]
     Dosage: UNK UNK, BID

REACTIONS (4)
  - Arthralgia [Recovered/Resolved]
  - General physical health deterioration [Recovered/Resolved]
  - Pyrexia [Recovered/Resolved]
  - Inflammation [Recovered/Resolved]
